FAERS Safety Report 10532884 (Version 1)
Quarter: 2014Q4

REPORT INFORMATION
  Report Type: Report from Study
  Country: IN (occurrence: IN)
  Receive Date: 20141022
  Receipt Date: 20141022
  Transmission Date: 20150529
  Serious: Yes (Death)
  Sender: FDA-Public Use
  Company Number: PHHY2014IN137128

PATIENT
  Age: 62 Year
  Sex: Male

DRUGS (1)
  1. SANDIMMUN NEORAL [Suspect]
     Active Substance: CYCLOSPORINE
     Indication: TRANSPLANT
     Dosage: 25 MG MORNING, 50 MG EVENING
     Route: 048
     Dates: start: 2006

REACTIONS (1)
  - Myocardial infarction [Fatal]
